FAERS Safety Report 7434772-9 (Version None)
Quarter: 2011Q2

REPORT INFORMATION
  Report Type: 
  Country: None (occurrence: None)
  Receive Date: 20110425
  Receipt Date: 20110418
  Transmission Date: 20111010
  Serious: No
  Sender: FDA-Public Use
  Company Number: US-B.I. PHARMACEUTICALS,INC./RIDGEFIELD-2010-BP-14128BP

PATIENT
  Sex: Female
  Weight: 99.79 kg

DRUGS (12)
  1. VITAMIN E [Concomitant]
  2. VITAMIN B COMPLEX CAP [Concomitant]
  3. CALCIUM [Concomitant]
     Dosage: 500 MG
  4. LANTUS [Concomitant]
     Indication: DIABETES MELLITUS
     Dosage: 14 RT
     Route: 058
  5. PRADAXA [Suspect]
     Indication: ANTICOAGULANT THERAPY
     Dosage: 150 MG
     Route: 048
     Dates: start: 20101116, end: 20101119
  6. FOLIC ACID [Concomitant]
     Dosage: 1 MG
  7. VITAMIN D [Concomitant]
  8. PRADAXA [Suspect]
     Indication: ATRIAL FIBRILLATION
  9. AMLODIPINE [Concomitant]
     Indication: HYPERTENSION
     Dosage: 40 MG
     Route: 048
  10. LASIX [Concomitant]
     Indication: FLUID RETENTION
     Dosage: 40 MG
     Route: 048
  11. CHROMIUM CHLORIDE [Concomitant]
     Dosage: 100 MG
  12. VITAMIIN C [Concomitant]

REACTIONS (5)
  - DYSPNOEA [None]
  - DIZZINESS [None]
  - NAUSEA [None]
  - OESOPHAGEAL PAIN [None]
  - DYSPEPSIA [None]
